FAERS Safety Report 9282401 (Version 1)
Quarter: 2013Q2

REPORT INFORMATION
  Report Type: Spontaneous
  Country: US (occurrence: None)
  Receive Date: 20130506
  Receipt Date: 20130506
  Transmission Date: 20140414
  Serious: Yes (Life-Threatening, Hospitalization, Other)
  Sender: FDA-Public Use
  Company Number: 2013P1005146

PATIENT
  Age: 35 Year
  Sex: Female

DRUGS (4)
  1. HYDROMORPHONE [Suspect]
     Indication: PROCEDURAL PAIN
     Route: 042
  2. KETOROLAC TROMETHAMINE [Suspect]
     Indication: PROCEDURAL PAIN
  3. DIPHENHYDRAMINE [Suspect]
  4. DEXMEDETOMIDINE [Concomitant]

REACTIONS (4)
  - Rash [None]
  - Postoperative ileus [None]
  - Abdominal compartment syndrome [None]
  - Pneumothorax [None]
